FAERS Safety Report 18067885 (Version 2)
Quarter: 2021Q3

REPORT INFORMATION
  Report Type: Spontaneous
  Country: ES (occurrence: ES)
  Receive Date: 20200724
  Receipt Date: 20210928
  Transmission Date: 20211014
  Serious: Yes (Hospitalization, Other)
  Sender: FDA-Public Use
  Company Number: ES-MYLANLABS-2020M1066159

PATIENT

DRUGS (7)
  1. INFLIXIMAB [Suspect]
     Active Substance: INFLIXIMAB
     Indication: PSORIASIS
     Dosage: UNK
  2. METHOTREXATE. [Suspect]
     Active Substance: METHOTREXATE
     Indication: PSORIATIC ARTHROPATHY
     Dosage: UNK
  3. INFLIXIMAB [Suspect]
     Active Substance: INFLIXIMAB
     Indication: PSORIATIC ARTHROPATHY
     Dosage: UNK
  4. APREMILAST [Suspect]
     Active Substance: APREMILAST
     Indication: PRODUCT USED FOR UNKNOWN INDICATION
     Dosage: UNK
  5. METHOTREXATE. [Suspect]
     Active Substance: METHOTREXATE
     Indication: NAIL PSORIASIS
     Dosage: UNK
  6. METHOTREXATE. [Suspect]
     Active Substance: METHOTREXATE
     Indication: PSORIASIS
     Dosage: UNK
  7. INFLIXIMAB [Suspect]
     Active Substance: INFLIXIMAB
     Indication: NAIL PSORIASIS
     Dosage: UNK

REACTIONS (4)
  - COVID-19 [Unknown]
  - Cyclic neutropenia [Unknown]
  - Hairy cell leukaemia [Unknown]
  - Infection [Unknown]
